FAERS Safety Report 21899436 (Version 1)
Quarter: 2023Q1

REPORT INFORMATION
  Report Type: Spontaneous
  Country: US (occurrence: None)
  Receive Date: 20230119
  Receipt Date: 20230119
  Transmission Date: 20230418
  Serious: Yes (Life-Threatening, Other)
  Sender: FDA-Public Use
  Company Number: None

PATIENT
  Age: 10 Month
  Sex: Male

DRUGS (1)
  1. HERBALS [Suspect]
     Active Substance: HERBALS
     Indication: Therapeutic skin care topical
     Dates: start: 202207, end: 202212

REACTIONS (2)
  - Metal poisoning [None]
  - Developmental delay [None]

NARRATIVE: CASE EVENT DATE: 20230113
